FAERS Safety Report 13151636 (Version 1)
Quarter: 2017Q1

REPORT INFORMATION
  Report Type: Spontaneous
  Country: ID (occurrence: ID)
  Receive Date: 20170125
  Receipt Date: 20170125
  Transmission Date: 20170428
  Serious: Yes (Other)
  Sender: FDA-Public Use
  Company Number: ID-TOLMAR, INC.-2017ID000723

PATIENT
  Age: 55 Year
  Sex: Male

DRUGS (1)
  1. ELIGARD [Suspect]
     Active Substance: LEUPROLIDE ACETATE
     Indication: PRODUCT USED FOR UNKNOWN INDICATION
     Dosage: 22.5 MG, Q3MONTHS
     Route: 042

REACTIONS (2)
  - Incorrect route of drug administration [Unknown]
  - Injection site discomfort [Unknown]
